FAERS Safety Report 16623639 (Version 3)
Quarter: 2019Q3

REPORT INFORMATION
  Report Type: Report from Study
  Country: None (occurrence: US)
  Receive Date: 20190724
  Receipt Date: 20190809
  Transmission Date: 20191004
  Serious: Yes (Hospitalization, Other)
  Sender: FDA-Public Use
  Company Number: US-ABBVIE-19K-163-2864071-00

PATIENT
  Age: 67 Year
  Sex: Male
  Weight: 79.9 kg

DRUGS (6)
  1. HUMIRA [Suspect]
     Active Substance: ADALIMUMAB
     Indication: COLITIS ULCERATIVE
     Route: 058
     Dates: start: 201905, end: 20190805
  2. CENTRUM [Concomitant]
     Active Substance: VITAMINS
     Indication: SUPPLEMENTATION THERAPY
  3. GLIMEPIRIDE. [Concomitant]
     Active Substance: GLIMEPIRIDE
     Indication: DIABETES MELLITUS
  4. FISH OIL [Concomitant]
     Active Substance: FISH OIL
     Indication: SUPPLEMENTATION THERAPY
  5. APRISO [Concomitant]
     Active Substance: MESALAMINE
     Indication: COLITIS
  6. ZOFRAN [Concomitant]
     Active Substance: ONDANSETRON HYDROCHLORIDE
     Indication: NAUSEA

REACTIONS (11)
  - Decreased appetite [Unknown]
  - Drug ineffective [Unknown]
  - Colitis ulcerative [Recovering/Resolving]
  - Gait inability [Unknown]
  - Gastrointestinal infection [Unknown]
  - Asthenia [Unknown]
  - Defaecation urgency [Unknown]
  - Diarrhoea [Not Recovered/Not Resolved]
  - Dysstasia [Unknown]
  - Frequent bowel movements [Unknown]
  - Weight decreased [Unknown]

NARRATIVE: CASE EVENT DATE: 2019
